FAERS Safety Report 17075719 (Version 2)
Quarter: 2019Q4

REPORT INFORMATION
  Report Type: Spontaneous
  Country: US (occurrence: US)
  Receive Date: 20191126
  Receipt Date: 20191202
  Transmission Date: 20200122
  Serious: Yes (Other)
  Sender: FDA-Public Use
  Company Number: US-PFIZER INC-2019505911

PATIENT
  Age: 56 Year
  Sex: Female

DRUGS (2)
  1. GEMCITABINE. [Concomitant]
     Active Substance: GEMCITABINE
     Indication: SQUAMOUS CELL CARCINOMA
     Dosage: UNK, CYCLIC (COMPLETED 2 CYCLES)
  2. CARBOPLATIN. [Suspect]
     Active Substance: CARBOPLATIN
     Indication: SQUAMOUS CELL CARCINOMA
     Dosage: UNK, CYCLIC (COMPLETED 2 CYCLES)

REACTIONS (1)
  - Nephropathy toxic [Unknown]
